FAERS Safety Report 7940818-1 (Version None)
Quarter: 2011Q4

REPORT INFORMATION
  Report Type: 
  Country: None (occurrence: None)
  Receive Date: 20111128
  Receipt Date: 20111122
  Transmission Date: 20120403
  Serious: Yes (Other)
  Sender: FDA-Public Use
  Company Number: DE-PFIZER INC-2011285486

PATIENT
  Age: 70 Year
  Sex: Male
  Weight: 111.8 kg

DRUGS (10)
  1. SIMVASTATIN [Concomitant]
     Indication: HYPERCHOLESTEROLAEMIA
     Dosage: UNK
     Dates: start: 20080520
  2. LEVOTHYROXINE [Concomitant]
     Indication: BLOOD THYROID STIMULATING HORMONE DECREASED
     Dosage: UNK
     Dates: start: 20040915
  3. FUROSEMIDE [Concomitant]
     Indication: OEDEMA
     Dosage: UNK
     Dates: start: 20060803
  4. LEVOTHYROXINE [Concomitant]
     Indication: PRIMARY HYPOTHYROIDISM
  5. SOMATROPIN [Suspect]
     Indication: GROWTH HORMONE DEFICIENCY
     Dosage: 0.2 MG, 1X/DAY (7 INJECTIONS A WEEK)
     Dates: start: 20050720
  6. SOMATROPIN [Suspect]
     Dosage: 1 MG, 1X/DAY
     Dates: end: 20100510
  7. ALLOPURINOL [Concomitant]
     Indication: BLOOD URIC ACID INCREASED
     Dosage: UNK
     Route: 048
     Dates: start: 20070815
  8. BISOPROLOL [Concomitant]
     Indication: HYPERTENSION
     Dosage: UNK
     Dates: start: 20090203
  9. RAMIPRIL [Concomitant]
     Indication: ESSENTIAL HYPERTENSION
     Dosage: UNK
     Dates: start: 20060803
  10. COLECALCIFEROL [Concomitant]
     Indication: VITAMIN D DEFICIENCY
     Dosage: UNK
     Dates: start: 20070808

REACTIONS (2)
  - NEOPLASM RECURRENCE [None]
  - CRANIOPHARYNGIOMA [None]
